FAERS Safety Report 9242813 (Version 1)
Quarter: 2013Q2

REPORT INFORMATION
  Report Type: Report from Study
  Country: RO (occurrence: RO)
  Receive Date: 20130419
  Receipt Date: 20130419
  Transmission Date: 20140414
  Serious: Yes (Other)
  Sender: FDA-Public Use
  Company Number: PHHY2013RO036420

PATIENT
  Sex: 0

DRUGS (1)
  1. ZOLEDRONATE [Suspect]
     Indication: METASTASES TO BONE
     Dosage: 5 MG
     Route: 042
     Dates: start: 20120822, end: 20121010

REACTIONS (2)
  - Pathological fracture [Not Recovered/Not Resolved]
  - Femur fracture [Not Recovered/Not Resolved]
